FAERS Safety Report 9875041 (Version 3)
Quarter: 2014Q2

REPORT INFORMATION
  Report Type: Report from Study
  Country: TW (occurrence: TW)
  Receive Date: 20140206
  Receipt Date: 20140404
  Transmission Date: 20141212
  Serious: Yes (Other)
  Sender: FDA-Public Use
  Company Number: PHHY2014TW013444

PATIENT
  Age: 72 Year
  Sex: Male
  Weight: 58 kg

DRUGS (21)
  1. AMN107 [Suspect]
     Indication: CHRONIC MYELOID LEUKAEMIA
     Dosage: 600 MG, QD
     Route: 048
     Dates: start: 20111219
  2. ACETYLSALICYLIC ACID [Concomitant]
     Indication: PROPHYLAXIS
     Dates: start: 20130220
  3. AMLODIPINE [Concomitant]
     Indication: HYPERTENSION
     Dates: start: 20120926
  4. ATENOLOL [Concomitant]
     Indication: HYPERTENSION
     Dates: start: 20131120, end: 20131218
  5. ATROPINE [Concomitant]
     Indication: ACUTE PULMONARY OEDEMA
     Dates: start: 20131216, end: 20131216
  6. ATROPINE [Concomitant]
     Indication: SINUS BRADYCARDIA
     Dates: start: 20140103, end: 20140103
  7. CEFAZOLIN [Concomitant]
     Indication: PROPHYLAXIS
     Dates: start: 20140107, end: 20140107
  8. FUROSEMIDE [Concomitant]
     Indication: ACUTE PULMONARY OEDEMA
     Dates: start: 20131216, end: 20131220
  9. FUROSEMIDE [Concomitant]
     Indication: PLEURAL EFFUSION
     Dates: start: 20140105
  10. HYDROCHLOROTHIAZIDE [Concomitant]
     Indication: HYPERTENSION
     Dates: start: 20130930, end: 20131025
  11. HYDROCHLOROTHIAZIDE [Concomitant]
     Indication: PLEURAL EFFUSION
     Dates: start: 20140102
  12. ISOSORBIDE DINITRATE [Concomitant]
     Indication: ACUTE PULMONARY OEDEMA
     Dates: start: 20131216, end: 20131217
  13. LOSARTAN [Concomitant]
     Indication: HYPERTENSION
     Dates: start: 20130513, end: 20130902
  14. LOSARTAN POTASSIUM/HYDROCHLOROTHIAZIDE [Concomitant]
     Indication: HYPERTENSION
     Dates: start: 20130902, end: 20131025
  15. NIFEDIPINE [Concomitant]
     Indication: HYPERTENSION
     Dates: start: 20130513, end: 20131014
  16. NORVASC [Concomitant]
     Indication: HYPERTENSION
     Dates: start: 20120808, end: 20120925
  17. QUINAPRIL [Concomitant]
     Indication: HYPERTENSION
     Dates: start: 20120926, end: 20121218
  18. TAMLOSIN [Concomitant]
     Indication: BENIGN PROSTATIC HYPERPLASIA
     Dates: start: 20130123, end: 20130805
  19. TAMSULOSIN HYDROCHLORIDE [Concomitant]
     Indication: BENIGN PROSTATIC HYPERPLASIA
     Dates: start: 20131120, end: 20131218
  20. XANAX [Concomitant]
     Indication: ANXIETY
     Dates: start: 20120307, end: 20120731
  21. XANAX [Concomitant]
     Dates: start: 20131023

REACTIONS (8)
  - Cardiac valve disease [Recovering/Resolving]
  - Dyspnoea [Unknown]
  - Pallor [Unknown]
  - Palpitations [Not Recovered/Not Resolved]
  - Dizziness [Unknown]
  - Chest discomfort [Unknown]
  - Upper respiratory tract infection [Unknown]
  - Hypocalcaemia [Unknown]
